FAERS Safety Report 13391767 (Version 2)
Quarter: 2017Q2

REPORT INFORMATION
  Report Type: Spontaneous
  Country: US (occurrence: US)
  Receive Date: 20170331
  Receipt Date: 20170406
  Transmission Date: 20170830
  Serious: Yes (Other)
  Sender: FDA-Public Use
  Company Number: US-LUNDBECK-DKLU2028381

PATIENT
  Sex: Female

DRUGS (2)
  1. SABRIL [Suspect]
     Active Substance: VIGABATRIN
     Indication: PRODUCT USED FOR UNKNOWN INDICATION
     Route: 048
     Dates: start: 20170103
  2. SABRIL [Suspect]
     Active Substance: VIGABATRIN
     Dosage: DOSE REDUCED
     Route: 048

REACTIONS (3)
  - Change in seizure presentation [Not Recovered/Not Resolved]
  - Coma [Not Recovered/Not Resolved]
  - Seizure [Not Recovered/Not Resolved]
